FAERS Safety Report 9162301 (Version 1)
Quarter: 2013Q1

REPORT INFORMATION
  Report Type: Spontaneous
  Country: US (occurrence: US)
  Receive Date: 20130314
  Receipt Date: 20130314
  Transmission Date: 20140127
  Serious: Yes (Death, Other)
  Sender: FDA-Public Use
  Company Number: PHEH2013US005763

PATIENT
  Age: 91 Year
  Sex: Female

DRUGS (14)
  1. RECLAST [Suspect]
     Dosage: YEARLY
     Route: 042
     Dates: start: 20080116
  2. RECLAST [Suspect]
     Dosage: YEARLY
     Route: 042
     Dates: start: 20120221
  3. TOPROL XL [Concomitant]
     Dosage: 50 MG, EVERY 12 HOURS
     Route: 048
     Dates: end: 20121114
  4. DELTASONE [Concomitant]
     Dosage: 5 MG, PER DAY (1 QAM WITH BREAKFAST)
     Route: 048
     Dates: start: 20120806
  5. RHEUMATREX [Concomitant]
     Dosage: 7.5 MG, EVERY 7 WEEKS
     Route: 048
     Dates: start: 20120806, end: 20121016
  6. FOLATE [Concomitant]
     Dosage: 01 MG, QD
     Route: 048
     Dates: start: 20120806
  7. SYNTHROID [Concomitant]
     Dosage: 50 UG, QD (ONCE DAILY BEFORE BREAKFAST)
     Route: 048
  8. NIASPAN [Concomitant]
     Dosage: 500 MG, TID
     Route: 048
  9. LIPITOR [Concomitant]
     Dosage: 80 MG, QD (ONCE EVERY NIGHT AT BEDTIME)
     Route: 048
  10. CALCIUM CARBONATE [Concomitant]
     Dosage: 500 MG, QD
     Route: 048
     Dates: end: 20121114
  11. VITAMIN E [Concomitant]
     Dosage: 100 U, QD
     Route: 048
  12. CORDARONE [Concomitant]
     Dosage: 200 MG, UNK
     Route: 048
  13. ZEBETA [Concomitant]
     Dosage: 10 MG, UNK
     Route: 048
  14. ATACAND [Concomitant]
     Dosage: 8 MG, UNK
     Route: 048

REACTIONS (18)
  - Death [Fatal]
  - Rheumatoid arthritis [Unknown]
  - Arthralgia [Unknown]
  - Musculoskeletal pain [Unknown]
  - Musculoskeletal discomfort [Unknown]
  - Musculoskeletal stiffness [Unknown]
  - Osteoarthritis [Unknown]
  - Scoliosis [Unknown]
  - Coronary artery disease [Unknown]
  - Spinal fracture [Unknown]
  - Exostosis [Unknown]
  - Tendon disorder [Unknown]
  - Drug hypersensitivity [Unknown]
  - Anaphylactic shock [Unknown]
  - Atrial fibrillation [Unknown]
  - Heart rate increased [Unknown]
  - Skin discolouration [Unknown]
  - Blood creatinine increased [Unknown]
